FAERS Safety Report 9895319 (Version 1)
Quarter: 2014Q1

REPORT INFORMATION
  Report Type: Spontaneous
  Country: US (occurrence: US)
  Receive Date: 20140213
  Receipt Date: 20140213
  Transmission Date: 20141002
  Serious: No
  Sender: FDA-Public Use
  Company Number: US-BRISTOL-MYERS SQUIBB COMPANY-18935635

PATIENT
  Age: 56 Year
  Sex: Female
  Weight: 56.69 kg

DRUGS (4)
  1. ABATACEPT SUBQ INJECTION 125MG/ML [Suspect]
     Dosage: 1DF: 125MG/ML
     Route: 058
  2. PERCOCET TABS 7.5 MG/500 MG [Concomitant]
     Dosage: 1 DF: 7.5MG/500MG
  3. PREDNISONE [Concomitant]
     Dosage: TABS
  4. TRAMADOL HCL [Concomitant]
     Dosage: TABS

REACTIONS (1)
  - Hepatic enzyme increased [Recovered/Resolved]
